FAERS Safety Report 4646505-X (Version None)
Quarter: 2005Q2

REPORT INFORMATION
  Report Type: 
  Country: None (occurrence: None)
  Receive Date: 20050427
  Receipt Date: 20040621
  Transmission Date: 20051028
  Serious: No
  Sender: FDA-Public Use
  Company Number: US-GLAXOSMITHKLINE-A0515364A

PATIENT
  Age: 51 Year
  Sex: Male

DRUGS (8)
  1. FLOVENT [Suspect]
     Indication: ASTHMA
     Dosage: 88MCG TWICE PER DAY
     Route: 055
     Dates: start: 20030401
  2. ALBUTEROL [Concomitant]
  3. SERZONE [Concomitant]
  4. XANAX [Concomitant]
  5. NEURONTIN [Concomitant]
  6. PREVACID [Concomitant]
  7. LIPITOR [Concomitant]
  8. CLARITIN [Concomitant]

REACTIONS (2)
  - COUGH [None]
  - DYSPHONIA [None]
